FAERS Safety Report 18381636 (Version 2)
Quarter: 2020Q4

REPORT INFORMATION
  Report Type: Spontaneous
  Country: US (occurrence: US)
  Receive Date: 20201014
  Receipt Date: 20201211
  Transmission Date: 20210114
  Serious: No
  Sender: FDA-Public Use
  Company Number: US-PFIZER INC-2020395527

PATIENT
  Age: 80 Year
  Sex: Female

DRUGS (1)
  1. IBRANCE [Suspect]
     Active Substance: PALBOCICLIB
     Indication: BREAST CANCER FEMALE
     Dosage: 75 MG, CYCLIC (75MG QD X 21 DAYS Q 28 DAYS/3WKS THEN 1 WK OFF)
     Route: 048
     Dates: start: 20180807

REACTIONS (2)
  - Fatigue [Not Recovered/Not Resolved]
  - Neoplasm progression [Recovered/Resolved]
